FAERS Safety Report 20955384 (Version 1)
Quarter: 2022Q2

REPORT INFORMATION
  Report Type: Spontaneous
  Country: FR (occurrence: FR)
  Receive Date: 20220614
  Receipt Date: 20220614
  Transmission Date: 20220721
  Serious: Yes (Other)
  Sender: FDA-Public Use
  Company Number: None

PATIENT
  Age: 16 Year
  Sex: Female
  Weight: 55 kg

DRUGS (3)
  1. FLURBIPROFEN [Suspect]
     Active Substance: FLURBIPROFEN
     Indication: Poisoning deliberate
     Dosage: DOSAGE NOT KNOWN
     Route: 048
     Dates: start: 20201103, end: 20201103
  2. DOLIPRANE [Suspect]
     Active Substance: ACETAMINOPHEN
     Indication: Poisoning deliberate
     Dosage: DOSAGE NOT KNOWN, SACHET-DOSE
     Route: 048
     Dates: start: 20201103, end: 20201103
  3. DOLIPRANE [Suspect]
     Active Substance: ACETAMINOPHEN
     Indication: Poisoning deliberate
     Dosage: DOSAGE NOT KNOWN, COMPRESSED
     Route: 048
     Dates: start: 20201103, end: 20201103

REACTIONS (2)
  - Poisoning deliberate [Recovered/Resolved]
  - Abdominal pain [Unknown]

NARRATIVE: CASE EVENT DATE: 20201103
